FAERS Safety Report 6790906-0 (Version None)
Quarter: 2010Q2

REPORT INFORMATION
  Report Type: 
  Country: None (occurrence: None)
  Receive Date: 20100624
  Receipt Date: 20100621
  Transmission Date: 20101027
  Serious: Yes (Hospitalization)
  Sender: FDA-Public Use
  Company Number: B0661489A

PATIENT
  Sex: Male

DRUGS (2)
  1. KIVEXA [Suspect]
     Dates: end: 20090401
  2. NEVIRAPINE [Suspect]
     Dates: end: 20090401

REACTIONS (10)
  - ABDOMINAL DISCOMFORT [None]
  - ANOGENITAL WARTS [None]
  - DIARRHOEA [None]
  - DIARRHOEA HAEMORRHAGIC [None]
  - FATIGUE [None]
  - NAUSEA [None]
  - OROPHARYNGEAL PAIN [None]
  - RASH MACULAR [None]
  - RECTAL HAEMORRHAGE [None]
  - VOMITING [None]
